FAERS Safety Report 4512868-9 (Version None)
Quarter: 2004Q4

REPORT INFORMATION
  Report Type: 
  Country: None (occurrence: None)
  Receive Date: 20041130
  Receipt Date: 20041122
  Transmission Date: 20050328
  Serious: Yes (Hospitalization)
  Sender: FDA-Public Use
  Company Number: GB-ABBOTT-04P-167-0281437-00

PATIENT
  Age: 75 Year
  Sex: Female

DRUGS (5)
  1. VERAPAMIL [Suspect]
     Indication: PALPITATIONS
     Route: 048
     Dates: start: 20040915, end: 20041027
  2. SIMVASTATIN [Suspect]
     Indication: BLOOD CHOLESTEROL INCREASED
     Route: 048
     Dates: end: 20041001
  3. SIMVASTATIN [Suspect]
     Route: 048
     Dates: start: 20041001, end: 20041028
  4. LISINOPRIL [Concomitant]
     Indication: HYPERTENSION
  5. ISOSORBIDE MONONITRATE [Concomitant]
     Indication: DRUG USE FOR UNKNOWN INDICATION
     Route: 048

REACTIONS (3)
  - ALANINE AMINOTRANSFERASE INCREASED [None]
  - MYOSITIS [None]
  - RHABDOMYOLYSIS [None]
